FAERS Safety Report 4980206-3 (Version None)
Quarter: 2006Q2

REPORT INFORMATION
  Report Type: 
  Country: None (occurrence: None)
  Receive Date: 20060424
  Receipt Date: 20060404
  Transmission Date: 20061013
  Serious: Yes (Hospitalization)
  Sender: FDA-Public Use
  Company Number: PHHO2006US05567

PATIENT
  Age: 13 Year
  Sex: Male
  Weight: 31.6 kg

DRUGS (3)
  1. DESFERAL [Suspect]
     Indication: BLOOD IRON INCREASED
     Dosage: 625 MG, QD
     Route: 048
     Dates: start: 20050910, end: 20060401
  2. FOLIC ACID [Concomitant]
     Dosage: 2 MG, QD
     Route: 048
     Dates: start: 20020101
  3. VITAMIN K [Concomitant]
     Indication: PROPHYLAXIS
     Dosage: 5 MG, UNK
     Route: 048
     Dates: start: 20060401

REACTIONS (5)
  - ABDOMINAL PAIN [None]
  - ASTHENIA [None]
  - DIARRHOEA [None]
  - SYNCOPE [None]
  - VOMITING [None]
